FAERS Safety Report 22783313 (Version 2)
Quarter: 2024Q1

REPORT INFORMATION
  Report Type: Spontaneous
  Country: US (occurrence: US)
  Receive Date: 20230803
  Receipt Date: 20240129
  Transmission Date: 20240409
  Serious: No
  Sender: FDA-Public Use
  Company Number: US-SAREPTA THERAPEUTICS INC.-SRP2023-003587

PATIENT
  Age: 9 Year
  Sex: Male
  Weight: 27.211 kg

DRUGS (2)
  1. AMONDYS 45 [Suspect]
     Active Substance: CASIMERSEN
     Indication: Duchenne muscular dystrophy
     Dosage: 849 MILLIGRAM, WEEKLY
     Route: 042
     Dates: start: 202205, end: 20230627
  2. AMONDYS 45 [Suspect]
     Active Substance: CASIMERSEN
     Dosage: 849 MILLIGRAM, WEEKLY
     Route: 042
     Dates: start: 20230710

REACTIONS (4)
  - Inappropriate schedule of product administration [Unknown]
  - Product distribution issue [Unknown]
  - Product dose omission issue [Unknown]
  - No adverse event [Unknown]

NARRATIVE: CASE EVENT DATE: 20230704
